FAERS Safety Report 7897508-3 (Version None)
Quarter: 2011Q4

REPORT INFORMATION
  Report Type: 
  Country: None (occurrence: None)
  Receive Date: 20111107
  Receipt Date: 20111027
  Transmission Date: 20120403
  Serious: Yes (Other)
  Sender: FDA-Public Use
  Company Number: JP-JNJFOC-20110104596

PATIENT
  Age: 34 Year
  Sex: Female
  Weight: 60 kg

DRUGS (11)
  1. REMICADE [Suspect]
     Route: 042
     Dates: start: 20091203
  2. REMICADE [Suspect]
     Route: 042
     Dates: start: 20100204
  3. REMICADE [Suspect]
     Indication: CROHN'S DISEASE
     Route: 042
     Dates: start: 20090610
  4. REMICADE [Suspect]
     Route: 042
     Dates: start: 20090624
  5. REMICADE [Suspect]
     Route: 042
     Dates: start: 20090722
  6. REMICADE [Suspect]
     Route: 042
     Dates: start: 20091001
  7. PENTASA [Concomitant]
     Indication: CROHN'S DISEASE
     Route: 048
     Dates: start: 20100610
  8. DAI-KENCHU-TO [Concomitant]
     Indication: CROHN'S DISEASE
     Route: 048
     Dates: start: 20100610
  9. RIZABEN [Concomitant]
     Indication: CROHN'S DISEASE
     Route: 048
     Dates: start: 20100610
  10. REMICADE [Suspect]
     Route: 042
     Dates: start: 20100408
  11. PREDNISOLONE [Concomitant]
     Indication: LUPUS-LIKE SYNDROME
     Route: 048
     Dates: start: 20100524

REACTIONS (1)
  - LUPUS-LIKE SYNDROME [None]
